FAERS Safety Report 9973709 (Version 1)
Quarter: 2014Q1

REPORT INFORMATION
  Report Type: Spontaneous
  Country: US (occurrence: None)
  Receive Date: 20140214
  Receipt Date: 20140214
  Transmission Date: 20141002
  Serious: Yes (Other)
  Sender: FDA-Public Use
  Company Number: US-013437

PATIENT
  Age: 55 Year
  Sex: Female
  Weight: 66.68 kg

DRUGS (12)
  1. PICO-SALAX (NOT SPECIFIED) [Suspect]
     Indication: BOWEL PREPARATION
     Dates: start: 20130929, end: 20130929
  2. LIBRAX [Concomitant]
  3. IMODIUM [Concomitant]
  4. ZYRTEC [Concomitant]
  5. NASONEX [Concomitant]
  6. PREMARIN [Concomitant]
  7. PROVERA [Concomitant]
  8. TIROSINT [Concomitant]
  9. VITAMIN D /00318501/ [Concomitant]
  10. B-12 [Concomitant]
  11. NAPROXEN SODIUM [Concomitant]
  12. GARDEN OF LIFE RAW PROBIOTICS FOR INTESTINE [Concomitant]

REACTIONS (13)
  - Chills [None]
  - Dry throat [None]
  - Throat irritation [None]
  - Chest discomfort [None]
  - Ear pain [None]
  - Headache [None]
  - Influenza [None]
  - Feeling cold [None]
  - Blood pressure increased [None]
  - Thirst [None]
  - Gastrointestinal sounds abnormal [None]
  - Abdominal discomfort [None]
  - Pruritus [None]
